FAERS Safety Report 24888501 (Version 2)
Quarter: 2025Q1

REPORT INFORMATION
  Report Type: Spontaneous
  Country: NL (occurrence: NL)
  Receive Date: 20250127
  Receipt Date: 20250303
  Transmission Date: 20250409
  Serious: Yes (Other)
  Sender: ACCORD
  Company Number: None

PATIENT
  Age: 90 Year
  Sex: Male
  Weight: 77 kg

DRUGS (8)
  1. ATORVASTATIN [Suspect]
     Active Substance: ATORVASTATIN
     Indication: Acute myocardial infarction
     Dates: start: 20190416, end: 20241129
  2. ASPIRIN [Concomitant]
     Active Substance: ASPIRIN
  3. ISOSORBIDE MONONITRATE [Concomitant]
     Active Substance: ISOSORBIDE MONONITRATE
  4. FAMOTIDINE [Concomitant]
     Active Substance: FAMOTIDINE
  5. TAMSULOSIN [Concomitant]
     Active Substance: TAMSULOSIN
  6. FUROSEMIDE [Concomitant]
     Active Substance: FUROSEMIDE
  7. FERROUS FUMARATE [Concomitant]
     Active Substance: FERROUS FUMARATE
  8. CLOBETASOL [Concomitant]
     Active Substance: CLOBETASOL

REACTIONS (2)
  - Myopathy [Recovering/Resolving]
  - Necrotising myositis [Recovering/Resolving]
